FAERS Safety Report 9094242 (Version 2)
Quarter: 2013Q2

REPORT INFORMATION
  Report Type: Spontaneous
  Country: US (occurrence: None)
  Receive Date: 20120525
  Receipt Date: 20120827
  Transmission Date: 20140414
  Serious: Yes (Other)
  Sender: FDA-Public Use
  Company Number: 350283

PATIENT
  Age: 52 Year
  Sex: Female

DRUGS (1)
  1. VICTOZA (LIRAGLUTIDE) SOLUTION FOR INJECTION, 6 MG/ML [Suspect]
     Indication: DIABETES MELLITUS
     Dates: start: 20120419

REACTIONS (8)
  - Feeling jittery [None]
  - Abdominal distension [None]
  - Decreased appetite [None]
  - Asthenia [None]
  - Dyspepsia [None]
  - Constipation [None]
  - Headache [None]
  - Blood glucose decreased [None]
